FAERS Safety Report 4875328-1 (Version None)
Quarter: 2006Q1

REPORT INFORMATION
  Report Type: 
  Country: None (occurrence: None)
  Receive Date: 20060109
  Receipt Date: 20051005
  Transmission Date: 20060701
  Serious: Yes (Hospitalization)
  Sender: FDA-Public Use
  Company Number: US-MERCK-0510USA04174

PATIENT
  Age: 75 Year
  Sex: Male
  Weight: 82 kg

DRUGS (23)
  1. VIOXX [Suspect]
     Indication: PAIN
     Route: 048
     Dates: start: 20010101, end: 20030102
  2. PRILOSEC [Concomitant]
     Route: 065
  3. FLOMAX (MORNIFLUMATE) [Concomitant]
     Route: 065
  4. POTASSIUM (UNSPECIFIED) [Concomitant]
     Route: 048
  5. MONOPRIL [Concomitant]
     Route: 065
  6. HYZAAR [Concomitant]
     Route: 065
  7. LEVAQUIN [Concomitant]
     Route: 065
  8. VIAGRA [Concomitant]
     Route: 065
  9. RHINOCORT [Concomitant]
     Route: 065
  10. ALBUTEROL [Concomitant]
     Route: 055
  11. PULMICORT [Concomitant]
     Route: 065
  12. TOBRADEX [Concomitant]
     Route: 047
  13. ALLEGRA [Concomitant]
     Route: 048
  14. VANCENASE [Concomitant]
     Route: 065
  15. DOXAZOSIN MESYLATE [Concomitant]
     Route: 065
  16. DILTIAZEM [Concomitant]
     Route: 065
  17. CELEBREX [Concomitant]
     Route: 048
  18. ATROVENT [Concomitant]
     Route: 065
  19. ASPIRIN [Concomitant]
     Route: 065
  20. CHLOR-TRIMETON [Concomitant]
     Route: 065
  21. FOLIC ACID [Concomitant]
     Route: 065
  22. COZAAR [Concomitant]
     Route: 065
  23. OXYTROL [Concomitant]
     Route: 065

REACTIONS (13)
  - ARTHROPATHY [None]
  - BENIGN PROSTATIC HYPERPLASIA [None]
  - CARDIOVASCULAR DISORDER [None]
  - CAROTID ARTERY ATHEROMA [None]
  - CATARACT [None]
  - CEREBRAL ARTERIOSCLEROSIS [None]
  - CEREBROVASCULAR ACCIDENT [None]
  - CHRONIC OBSTRUCTIVE PULMONARY DISEASE [None]
  - DIARRHOEA [None]
  - ESSENTIAL HYPERTENSION [None]
  - KNEE OPERATION [None]
  - TRANSIENT ISCHAEMIC ATTACK [None]
  - URINARY TRACT INFECTION [None]
